FAERS Safety Report 18218969 (Version 1)
Quarter: 2020Q3

REPORT INFORMATION
  Report Type: Spontaneous
  Country: HR (occurrence: HR)
  Receive Date: 20200901
  Receipt Date: 20200901
  Transmission Date: 20201103
  Serious: Yes (Other)
  Sender: FDA-Public Use
  Company Number: HR-BAYER-2020-180984

PATIENT
  Age: 17 Year
  Sex: Female
  Weight: 51 kg

DRUGS (4)
  1. LORATADINE. [Suspect]
     Active Substance: LORATADINE
     Indication: OVERDOSE
     Dosage: DF = 1 TBL
     Route: 048
     Dates: start: 20200609, end: 20200609
  2. ZARACET [Suspect]
     Active Substance: ACETAMINOPHEN\TRAMADOL HYDROCHLORIDE
     Indication: OVERDOSE
     Dosage: DF=1 TABLETA
     Route: 048
     Dates: start: 20200609, end: 20200609
  3. PANTOPRAZOLE [Suspect]
     Active Substance: PANTOPRAZOLE
     Indication: OVERDOSE
     Dosage: DF=1 TABLETA
     Route: 048
     Dates: start: 20200609, end: 20200609
  4. SPASMEX [TROSPIUM CHLORIDE] [Suspect]
     Active Substance: TROSPIUM CHLORIDE
     Indication: OVERDOSE
     Dosage: 150 MG, QD
     Route: 048
     Dates: start: 20200609, end: 20200609

REACTIONS (3)
  - Intentional overdose [Unknown]
  - Suicide attempt [Unknown]
  - No adverse event [Unknown]

NARRATIVE: CASE EVENT DATE: 20200609
